FAERS Safety Report 16646677 (Version 2)
Quarter: 2019Q3

REPORT INFORMATION
  Report Type: Report from Study
  Country: None (occurrence: CA)
  Receive Date: 20190730
  Receipt Date: 20190831
  Transmission Date: 20191004
  Serious: Yes (Other)
  Sender: FDA-Public Use
  Company Number: CA-ABBVIE-19K-028-2871314-00

PATIENT
  Age: 34 Year
  Sex: Female
  Weight: 89.8 kg

DRUGS (2)
  1. HUMIRA [Suspect]
     Active Substance: ADALIMUMAB
     Route: 058
     Dates: start: 2019
  2. HUMIRA [Suspect]
     Active Substance: ADALIMUMAB
     Indication: CROHN^S DISEASE
     Route: 058
     Dates: start: 20180222

REACTIONS (4)
  - Psoriasis [Recovered/Resolved]
  - Haemoglobin decreased [Unknown]
  - Iron deficiency anaemia [Unknown]
  - Transfusion [Unknown]

NARRATIVE: CASE EVENT DATE: 201907
